FAERS Safety Report 18507584 (Version 1)
Quarter: 2020Q4

REPORT INFORMATION
  Report Type: Spontaneous
  Country: PL (occurrence: PL)
  Receive Date: 20201116
  Receipt Date: 20201116
  Transmission Date: 20210114
  Serious: Yes (Hospitalization)
  Sender: FDA-Public Use
  Company Number: NVSC2020PL302552

PATIENT
  Age: 71 Year
  Sex: Male
  Weight: 94 kg

DRUGS (1)
  1. PAZOPANIB [Suspect]
     Active Substance: PAZOPANIB
     Indication: RENAL CANCER
     Dosage: 800 MG,QD
     Route: 048
     Dates: start: 20170921

REACTIONS (2)
  - Scrotal dermatitis [Recovering/Resolving]
  - Skin weeping [Recovering/Resolving]

NARRATIVE: CASE EVENT DATE: 20171020
